FAERS Safety Report 8520909-7 (Version None)
Quarter: 2012Q3

REPORT INFORMATION
  Report Type: 
  Country: None (occurrence: None)
  Receive Date: 20120719
  Receipt Date: 20120716
  Transmission Date: 20120928
  Serious: No
  Sender: FDA-Public Use
  Company Number: US-PFIZER INC-2012171875

PATIENT
  Sex: Female
  Weight: 52.154 kg

DRUGS (2)
  1. LISINOPRIL [Concomitant]
     Indication: HYPERTENSION
     Dosage: 10 MG, UNK
  2. NEURONTIN [Suspect]
     Indication: NEUROPATHY PERIPHERAL
     Dosage: UNK, 3X/DAY
     Route: 048
     Dates: end: 20110101

REACTIONS (3)
  - DRUG INEFFECTIVE [None]
  - HANGOVER [None]
  - SOMNOLENCE [None]
